FAERS Safety Report 23990897 (Version 2)
Quarter: 2024Q3

REPORT INFORMATION
  Report Type: Spontaneous
  Country: IT (occurrence: IT)
  Receive Date: 20240619
  Receipt Date: 20240702
  Transmission Date: 20241017
  Serious: Yes (Other)
  Sender: TEVA
  Company Number: IT-TEVA-VS-3209222

PATIENT
  Age: 42 Year
  Sex: Female

DRUGS (4)
  1. FLUOROURACIL [Suspect]
     Active Substance: FLUOROURACIL
     Indication: Malignant neoplasm of ampulla of Vater
     Dosage: RECEIVED 4 CYCLES
     Route: 065
     Dates: start: 2019
  2. LEUCOVORIN [Suspect]
     Active Substance: LEUCOVORIN\LEUCOVORIN CALCIUM
     Indication: Malignant neoplasm of ampulla of Vater
     Dosage: RECEIVED 4 CYCLES
     Route: 065
     Dates: start: 2019
  3. PEGFILGRASTIM [Suspect]
     Active Substance: PEGFILGRASTIM
     Indication: Prophylaxis
     Route: 065
     Dates: start: 2019
  4. OXALIPLATIN [Suspect]
     Active Substance: OXALIPLATIN
     Indication: Malignant neoplasm of ampulla of Vater
     Dosage: RECEIVED 4 CYCLES
     Route: 065
     Dates: start: 2019

REACTIONS (2)
  - Myelosuppression [Unknown]
  - Drug ineffective [Unknown]

NARRATIVE: CASE EVENT DATE: 20190101
